FAERS Safety Report 22016993 (Version 3)
Quarter: 2024Q3

REPORT INFORMATION
  Report Type: Spontaneous
  Country: JP (occurrence: JP)
  Receive Date: 20230221
  Receipt Date: 20240702
  Transmission Date: 20241017
  Serious: Yes (Death, Hospitalization, Other)
  Sender: MERCK
  Company Number: JP-MSD-M2023-04907

PATIENT
  Sex: Male

DRUGS (1)
  1. KEYTRUDA [Suspect]
     Active Substance: PEMBROLIZUMAB
     Indication: Transitional cell carcinoma
     Dosage: 200 MILLIGRAM, Q3W
     Route: 041
     Dates: start: 20230112, end: 20230112

REACTIONS (8)
  - Haematemesis [Recovering/Resolving]
  - Immune-mediated hepatic disorder [Recovering/Resolving]
  - Malignant neoplasm progression [Fatal]
  - Cardiac arrest [Fatal]
  - Ulcer [Unknown]
  - Amylase increased [Unknown]
  - Decreased appetite [Recovering/Resolving]
  - Platelet count decreased [Recovering/Resolving]

NARRATIVE: CASE EVENT DATE: 20230101
